FAERS Safety Report 10249214 (Version 1)
Quarter: 2014Q2

REPORT INFORMATION
  Report Type: Spontaneous
  Country: US (occurrence: None)
  Receive Date: 20140619
  Receipt Date: 20140619
  Transmission Date: 20141212
  Serious: Yes (Other)
  Sender: FDA-Public Use
  Company Number: None

PATIENT
  Age: 30 Year
  Sex: Female
  Weight: 64.86 kg

DRUGS (1)
  1. BUPROPION [Suspect]
     Indication: HEADACHE
     Dosage: 150MG, ONCE DAILY, ORALLY
     Route: 048
     Dates: start: 20140607, end: 20140616

REACTIONS (8)
  - Tetany [None]
  - Myalgia [None]
  - Oedema peripheral [None]
  - Muscular weakness [None]
  - Gait disturbance [None]
  - Musculoskeletal stiffness [None]
  - Inflammation [None]
  - Venous thrombosis [None]
